FAERS Safety Report 13540465 (Version 2)
Quarter: 2017Q2

REPORT INFORMATION
  Report Type: Spontaneous
  Country: IT (occurrence: IT)
  Receive Date: 20170512
  Receipt Date: 20170517
  Transmission Date: 20170830
  Serious: Yes (Death, Other)
  Sender: FDA-Public Use
  Company Number: IT-BAYER-2017-085968

PATIENT
  Age: 52 Year
  Sex: Male

DRUGS (1)
  1. REGORAFENIB [Suspect]
     Active Substance: REGORAFENIB
     Dosage: 160 MG, UNK
     Route: 048
     Dates: start: 201409, end: 201501

REACTIONS (7)
  - Death [Fatal]
  - Rash [None]
  - Pain [None]
  - Disease progression [None]
  - Dyspnoea [None]
  - Fatigue [None]
  - Hypertension [None]

NARRATIVE: CASE EVENT DATE: 201501
